FAERS Safety Report 8034676-7 (Version None)
Quarter: 2012Q1

REPORT INFORMATION
  Report Type: 
  Country: None (occurrence: None)
  Receive Date: 20120111
  Receipt Date: 20120109
  Transmission Date: 20120608
  Serious: Yes (Other)
  Sender: FDA-Public Use
  Company Number: US-BRISTOL-MYERS SQUIBB COMPANY-16338428

PATIENT
  Age: 57 Year
  Sex: Female
  Weight: 58 kg

DRUGS (2)
  1. ABILIFY [Suspect]
     Indication: DEPRESSION
     Dosage: DOSE REDUCED:5 MG ONCE DAILY ORAL.
     Route: 048
  2. PRISTIQ [Concomitant]
     Indication: DEPRESSION

REACTIONS (2)
  - HALLUCINATION [None]
  - WRONG TECHNIQUE IN DRUG USAGE PROCESS [None]
